FAERS Safety Report 18834782 (Version 1)
Quarter: 2021Q1

REPORT INFORMATION
  Report Type: Spontaneous
  Country: US (occurrence: US)
  Receive Date: 20210203
  Receipt Date: 20210203
  Transmission Date: 20210419
  Serious: Yes (Hospitalization)
  Sender: FDA-Public Use
  Company Number: None

PATIENT
  Age: 72 Year
  Sex: Male

DRUGS (2)
  1. ASPIRIN (ASPIRIN 81MG TAB, EC)?INCOMPLETE TRANSMISSION [Suspect]
     Active Substance: ASPIRIN
     Indication: CEREBROVASCULAR ACCIDENT
     Route: 048
     Dates: end: 20210120
  2. CLOPIDOGREL (CLOPIDOGREL BISULFATE 75MG TAB) [Suspect]
     Active Substance: CLOPIDOGREL BISULFATE
     Indication: CEREBROVASCULAR ACCIDENT
     Route: 048
     Dates: end: 20210120

REACTIONS (4)
  - Melaena [None]
  - Constipation [None]
  - Gastritis [None]
  - Upper gastrointestinal haemorrhage [None]

NARRATIVE: CASE EVENT DATE: 20191113
